FAERS Safety Report 6608313-X (Version None)
Quarter: 2010Q1

REPORT INFORMATION
  Report Type: 
  Country: None (occurrence: None)
  Receive Date: 20100301
  Receipt Date: 20100222
  Transmission Date: 20100710
  Serious: Yes (Hospitalization)
  Sender: FDA-Public Use
  Company Number: JP-SANOFI-AVENTIS-2009SA011011

PATIENT
  Age: 70 Year
  Sex: Male
  Weight: 57 kg

DRUGS (6)
  1. PLAVIX [Suspect]
     Indication: LACUNAR INFARCTION
     Route: 048
     Dates: start: 20070706, end: 20071124
  2. PLAVIX [Suspect]
     Indication: ISCHAEMIC CEREBRAL INFARCTION
     Route: 048
     Dates: start: 20070706, end: 20071124
  3. BUFFERIN [Concomitant]
     Route: 048
     Dates: start: 20070706, end: 20071124
  4. AMLODIPINE [Concomitant]
     Indication: HYPERTENSION
     Route: 048
     Dates: start: 20070706, end: 20071124
  5. MICARDIS [Concomitant]
     Indication: HYPERTENSION
     Route: 048
     Dates: start: 20070706, end: 20071124
  6. STOGAR [Concomitant]
     Route: 048
     Dates: start: 20070706, end: 20071124

REACTIONS (1)
  - LACUNAR INFARCTION [None]
